FAERS Safety Report 18235300 (Version 9)
Quarter: 2021Q4

REPORT INFORMATION
  Report Type: Spontaneous
  Country: JP (occurrence: JP)
  Receive Date: 20200905
  Receipt Date: 20211221
  Transmission Date: 20220304
  Serious: Yes (Hospitalization)
  Sender: FDA-Public Use
  Company Number: JP-ONO-2020JP020602

PATIENT
  Age: 77 Year
  Sex: Male
  Weight: 64.5 kg

DRUGS (26)
  1. PARSABIV [Suspect]
     Active Substance: ETELCALCETIDE HYDROCHLORIDE
     Indication: Hyperparathyroidism secondary
     Dosage: 2.5 MG, Q56H
     Route: 010
     Dates: start: 20190112, end: 20201112
  2. PARSABIV [Suspect]
     Active Substance: ETELCALCETIDE HYDROCHLORIDE
     Dosage: 2.5 MILLIGRAM
     Route: 010
     Dates: start: 20210612
  3. DARBEPOETIN ALFA [Concomitant]
     Active Substance: DARBEPOETIN ALFA
     Dosage: 5 UG, QW
     Route: 065
     Dates: start: 20210923
  4. MAXACALCITOL [Concomitant]
     Active Substance: MAXACALCITOL
     Dosage: 5 UG, Q84H
     Route: 010
     Dates: start: 20181106, end: 20190321
  5. MAXACALCITOL [Concomitant]
     Active Substance: MAXACALCITOL
     Dosage: 2.5 UG, QW
     Route: 010
     Dates: start: 20181110, end: 20190323
  6. MAXACALCITOL [Concomitant]
     Active Substance: MAXACALCITOL
     Dosage: 5 UG, QW
     Route: 010
     Dates: start: 20190326, end: 20190709
  7. MAXACALCITOL [Concomitant]
     Active Substance: MAXACALCITOL
     Dosage: 2.5 UG, Q84H
     Route: 010
     Dates: start: 20190328, end: 20190905
  8. MAXACALCITOL [Concomitant]
     Active Substance: MAXACALCITOL
     Dosage: 2.5 UG, Q56H
     Route: 010
     Dates: start: 20190910, end: 20210304
  9. MAXACALCITOL [Concomitant]
     Active Substance: MAXACALCITOL
     Dosage: 5 UG, Q56H
     Route: 010
     Dates: start: 20210306, end: 20210408
  10. MAXACALCITOL [Concomitant]
     Active Substance: MAXACALCITOL
     Dosage: 2.5 UG, QW
     Route: 010
     Dates: start: 20210410, end: 20210807
  11. MAXACALCITOL [Concomitant]
     Active Substance: MAXACALCITOL
     Dosage: 5 UG, Q84H
     Route: 010
     Dates: start: 20210413, end: 20210805
  12. MAXACALCITOL [Concomitant]
     Active Substance: MAXACALCITOL
     Dosage: 2.5 UG, Q84H
     Route: 010
     Dates: start: 20210810
  13. MAXACALCITOL [Concomitant]
     Active Substance: MAXACALCITOL
     Dosage: 5 UG, QW
     Route: 010
     Dates: start: 20210812, end: 20210909
  14. FOSRENOL [Concomitant]
     Active Substance: LANTHANUM CARBONATE
     Indication: Hyperphosphataemia
     Dosage: 1500 MG, EVERYDAY
     Route: 048
     Dates: end: 20181221
  15. FOSRENOL [Concomitant]
     Active Substance: LANTHANUM CARBONATE
     Dosage: 750 MG, Q8H
     Route: 048
     Dates: start: 20181222
  16. BIXALOMER [Concomitant]
     Active Substance: BIXALOMER
     Indication: Hyperphosphataemia
     Dosage: 750 MG, EVERYDAY
     Route: 048
     Dates: start: 20190420, end: 20190510
  17. BIXALOMER [Concomitant]
     Active Substance: BIXALOMER
     Dosage: 500 MG, Q8H
     Route: 048
     Dates: start: 20190511
  18. LANSOPRAZOLE [Concomitant]
     Active Substance: LANSOPRAZOLE
     Indication: Prophylaxis
     Dosage: 15 MG, EVERYDAY
     Route: 048
  19. ATORVASTATIN [Concomitant]
     Active Substance: ATORVASTATIN
     Indication: Hypercholesterolaemia
     Dosage: 10 MG, EVERYDAY
     Route: 048
  20. SENNOSIDES A AND B [Concomitant]
     Active Substance: SENNOSIDES A AND B
     Indication: Constipation
     Dosage: 24 MG, PRN
     Route: 048
  21. ASPIRIN [Concomitant]
     Active Substance: ASPIRIN
     Indication: Prophylaxis
     Dosage: 100 MG, EVERYDAY
     Route: 048
  22. NITRAZEPAM [Concomitant]
     Active Substance: NITRAZEPAM
     Indication: Insomnia
     Dosage: 5 MG, PRN
     Route: 048
  23. IRON SUCROSE [Concomitant]
     Active Substance: IRON SUCROSE
     Dosage: 40 MILLIGRAM, QWK
     Route: 042
     Dates: end: 20181213
  24. IRON SUCROSE [Concomitant]
     Active Substance: IRON SUCROSE
     Dosage: 40 MILLIGRAM, QWK
     Route: 042
     Dates: start: 20201001, end: 20201029
  25. IRON SUCROSE [Concomitant]
     Active Substance: IRON SUCROSE
     Dosage: 40 MILLIGRAM, QWK
     Route: 042
     Dates: start: 20210422, end: 20210429
  26. IRON SUCROSE [Concomitant]
     Active Substance: IRON SUCROSE
     Dosage: 40 MILLIGRAM, QWK
     Route: 042
     Dates: start: 20211113

REACTIONS (5)
  - Atrial tachycardia [Recovered/Resolved]
  - Shunt stenosis [Recovered/Resolved]
  - Shunt stenosis [Recovered/Resolved]
  - Shunt stenosis [Recovered/Resolved]
  - Shunt stenosis [Recovered/Resolved]

NARRATIVE: CASE EVENT DATE: 20200518
